FAERS Safety Report 10804515 (Version 1)
Quarter: 2015Q1

REPORT INFORMATION
  Report Type: Report from Study
  Country: US (occurrence: US)
  Receive Date: 20150217
  Receipt Date: 20150217
  Transmission Date: 20150721
  Serious: No
  Sender: FDA-Public Use
  Company Number: US-ABBVIE-14K-163-1248940-00

PATIENT
  Age: 29 Year
  Sex: Female

DRUGS (3)
  1. UNKNOWN ANTIANXIETY MEDICATION [Concomitant]
     Indication: ANXIETY
     Dates: start: 201405
  2. HUMIRA [Suspect]
     Active Substance: ADALIMUMAB
     Indication: PSORIASIS
     Dates: start: 20140214
  3. HUMIRA [Suspect]
     Active Substance: ADALIMUMAB
     Dates: start: 20140529

REACTIONS (4)
  - Inappropriate schedule of drug administration [Recovered/Resolved]
  - Drug effect incomplete [Unknown]
  - Burning sensation [Unknown]
  - Skin irritation [Unknown]

NARRATIVE: CASE EVENT DATE: 2014
